FAERS Safety Report 20323583 (Version 5)
Quarter: 2023Q2

REPORT INFORMATION
  Report Type: Spontaneous
  Country: IT (occurrence: IT)
  Receive Date: 20220111
  Receipt Date: 20230417
  Transmission Date: 20230722
  Serious: Yes (Hospitalization)
  Sender: FDA-Public Use
  Company Number: IT-CELGENE-ITA-20211208796

PATIENT
  Age: 75 Year
  Sex: Female

DRUGS (11)
  1. AZACITIDINE [Suspect]
     Active Substance: AZACITIDINE
     Indication: Acute myeloid leukaemia
     Dosage: 75 MILLIGRAM
     Route: 058
  2. AZACITIDINE [Suspect]
     Active Substance: AZACITIDINE
     Dosage: CYCLE (75MG/SQ. METER DAY 1-7 OF 28 DAYS CYCLE)
     Route: 058
  3. AZACITIDINE [Suspect]
     Active Substance: AZACITIDINE
     Dosage: 75 MILLIGRAM
     Route: 065
  4. AZACITIDINE [Suspect]
     Active Substance: AZACITIDINE
     Dosage: 75 MILLIGRAM, 1-7 DAYS
     Route: 058
  5. AZACITIDINE [Suspect]
     Active Substance: AZACITIDINE
     Dosage: CYCLE (75MG/SQ. METER DAY 1-7 OF 28 DAYS CYCLE)
     Route: 058
  6. VENETOCLAX [Suspect]
     Active Substance: VENETOCLAX
     Indication: Acute myeloid leukaemia
     Dosage: 100 MILLIGRAM, QD
     Route: 048
  7. VENETOCLAX [Suspect]
     Active Substance: VENETOCLAX
     Dosage: 400 MILLIGRAM, QD
     Route: 048
  8. VENETOCLAX [Suspect]
     Active Substance: VENETOCLAX
     Dosage: 200 MILLIGRAM, QD
     Route: 048
  9. VENETOCLAX [Suspect]
     Active Substance: VENETOCLAX
     Dosage: 100 MILLIGRAM, QD
     Route: 048
  10. VENETOCLAX [Suspect]
     Active Substance: VENETOCLAX
     Dosage: 400 MILLIGRAM, QD
     Route: 048
  11. VENETOCLAX [Suspect]
     Active Substance: VENETOCLAX
     Indication: Product used for unknown indication
     Dosage: 100 MG DAY 1, 200 MG, DAY 2 AND FROM DAY 3 400 MG
     Route: 048

REACTIONS (5)
  - Hyperbilirubinaemia [Not Recovered/Not Resolved]
  - International normalised ratio increased [Not Recovered/Not Resolved]
  - Asthenia [Not Recovered/Not Resolved]
  - Therapeutic response decreased [Unknown]
  - Off label use [Not Recovered/Not Resolved]
